FAERS Safety Report 15811714 (Version 3)
Quarter: 2019Q2

REPORT INFORMATION
  Report Type: Spontaneous
  Country: US (occurrence: US)
  Receive Date: 20190111
  Receipt Date: 20190415
  Transmission Date: 20190711
  Serious: No
  Sender: FDA-Public Use
  Company Number: US-PFIZER INC-2013139084

PATIENT
  Age: 89 Year
  Sex: Male
  Weight: 91 kg

DRUGS (27)
  1. LYRICA [Suspect]
     Active Substance: PREGABALIN
     Indication: NEUROPATHY PERIPHERAL
     Dosage: 150 MG, 2X/DAY
     Route: 048
  2. ASPIRIN EC [Concomitant]
     Active Substance: ASPIRIN
     Dosage: 81 MG, DAILY
     Route: 048
  3. FINASTERIDE. [Concomitant]
     Active Substance: FINASTERIDE
     Dosage: 5 MG, DAILY
     Route: 048
  4. VITAMIN B COMPLEX [Concomitant]
     Active Substance: CYANOCOBALAMIN\DEXPANTHENOL\NIACINAMIDE\PYRIDOXINE HYDROCHLORIDE\RIBOFLAVIN 5^-PHOSPHATE SODIUM\THIAMINE HYDROCHLORIDE\VITAMIN B COMPLEX
     Dosage: UNK, 1X/DAY (QD)
  5. CINNAMON. [Concomitant]
     Active Substance: CINNAMON
     Dosage: 1000 MG, UNK
  6. ASTELIN [Concomitant]
     Active Substance: AZELASTINE HYDROCHLORIDE
     Dosage: 4 DF, 2X/DAY (137 MCG)
  7. FLOMAX [Concomitant]
     Active Substance: TAMSULOSIN HYDROCHLORIDE
     Dosage: 0.4 MG, 1X/DAY (1 EVERY EVENING)
  8. LYRICA [Suspect]
     Active Substance: PREGABALIN
     Indication: RESTLESS LEGS SYNDROME
     Dosage: 225 MG, 2X/DAY
     Route: 048
  9. CENTRUM SILVER [Concomitant]
     Active Substance: MINERALS\VITAMINS
     Dosage: UNK, 1X/DAY
  10. MUCINEX [Concomitant]
     Active Substance: GUAIFENESIN
     Dosage: 1200 MG, 1X/DAY [QD]
  11. SIMVASTATIN. [Concomitant]
     Active Substance: SIMVASTATIN
     Dosage: 20 MG, 1X/DAY
  12. CALCIUM + MAGNESIUM [Concomitant]
     Dosage: UNK, 3X/DAY (CALCIUM -311 MG) \ (MAGNESIUM-232 MG)
  13. OMEGA-3 FISH OIL [Concomitant]
     Active Substance: FISH OIL\OMEGA-3 FATTY ACIDS
     Dosage: UNK, DAILY (900 MG (253 MG-647 MG)-1,400 MG 2 DAILY)
  14. VIT D [Concomitant]
     Active Substance: VITAMIN D NOS
     Dosage: 2000 IU, 1X/DAY
  15. CLONAZEPAM. [Concomitant]
     Active Substance: CLONAZEPAM
     Dosage: 0.25 MG, DAILY
     Route: 048
  16. HUMIRA [Concomitant]
     Active Substance: ADALIMUMAB
     Dosage: UNK (INJECT 0.8 ML (40MG) BY SUBCUTANEOUS ROUTE EVERY 2 WEEKS)
     Route: 058
  17. FLUTICASONE PROPIONATE. [Concomitant]
     Active Substance: FLUTICASONE PROPIONATE
     Dosage: 4 DF, DAILY (2 SPRAY BY INTRANASAL ROUTE EVERY DAY IN EACH NOSTRIL)
     Route: 045
  18. MOMETASONE FUROATE. [Concomitant]
     Active Substance: MOMETASONE FUROATE
     Dosage: UNK, 2X/DAY (A THIN LAYER TO THE AFFECTED AREAS)
     Route: 061
  19. POTASSIUM GLUCONATE [Concomitant]
     Active Substance: POTASSIUM GLUCONATE
     Dosage: UNK, 1X/DAY (550 MG (90 MG))
  20. VITAMIN E [Concomitant]
     Active Substance: .ALPHA.-TOCOPHEROL
     Dosage: 4000 IU, 1X/DAY
  21. NEXIUM [Concomitant]
     Active Substance: ESOMEPRAZOLE MAGNESIUM
     Dosage: 40 MG, DAILY
     Route: 048
  22. MUPIROCIN. [Concomitant]
     Active Substance: MUPIROCIN
     Dosage: UNK, 2X/DAY (A SMALL AMOUNT TO THE AFFECTED AREA)
     Route: 061
  23. VITAMIN C [Concomitant]
     Active Substance: ASCORBIC ACID
     Dosage: 500 MG, 1X/DAY
  24. FERROUS GLUCONATE [Concomitant]
     Active Substance: FERROUS GLUCONATE
     Dosage: UNK, DAILY(236 MG (27 MG IRON) 65MG )
  25. METOPROLOL TARTRATE. [Concomitant]
     Active Substance: METOPROLOL TARTRATE
     Dosage: UNK, 2X/DAY (1/2 TWICE A DAY)
  26. VESICARE [Concomitant]
     Active Substance: SOLIFENACIN SUCCINATE
     Dosage: 5 MG, 1X/DAY
  27. REQUIP [Concomitant]
     Active Substance: ROPINIROLE HYDROCHLORIDE
     Dosage: 2 MG, 1X/DAY (2 EVERY DAY AT BEDTIME)

REACTIONS (5)
  - Product use in unapproved indication [Unknown]
  - Anxiety [Not Recovered/Not Resolved]
  - Insomnia [Not Recovered/Not Resolved]
  - Nausea [Unknown]
  - Nasopharyngitis [Not Recovered/Not Resolved]

NARRATIVE: CASE EVENT DATE: 20190103
